FAERS Safety Report 21379343 (Version 1)
Quarter: 2022Q3

REPORT INFORMATION
  Report Type: Spontaneous
  Country: DE (occurrence: None)
  Receive Date: 20220927
  Receipt Date: 20220927
  Transmission Date: 20221026
  Serious: No
  Sender: FDA-Public Use
  Company Number: None

PATIENT
  Age: 89 Year
  Sex: Male

DRUGS (3)
  1. FLUCLOXACILLIN [Suspect]
     Active Substance: FLUCLOXACILLIN
  2. PIPERACILLIN SODIUM\TAZOBACTAM SODIUM [Suspect]
     Active Substance: PIPERACILLIN SODIUM\TAZOBACTAM SODIUM
     Dosage: ()
  3. Fusidins?ure/Betamethason Mysan 20 mg [Concomitant]

REACTIONS (9)
  - Staphylococcus test positive [Unknown]
  - Therapy change [Unknown]
  - Platelet count decreased [Unknown]
  - Pyrexia [Unknown]
  - Penile pain [Unknown]
  - Chronic kidney disease [Unknown]
  - Therapy cessation [Unknown]
  - Penile infection [Unknown]
  - Infection [Unknown]
